FAERS Safety Report 11498287 (Version 1)
Quarter: 2015Q3

REPORT INFORMATION
  Report Type: Spontaneous
  Country: SE (occurrence: SE)
  Receive Date: 20150911
  Receipt Date: 20150911
  Transmission Date: 20151125
  Serious: Yes (Death, Hospitalization, Other)
  Sender: FDA-Public Use
  Company Number: SE-BRISTOL-MYERS SQUIBB COMPANY-BMS-2015-058499

PATIENT
  Age: 63 Year
  Sex: Male

DRUGS (2)
  1. DAKLINZA [Suspect]
     Active Substance: DACLATASVIR
     Indication: HEPATITIS C
     Dosage: 60 MG, QD
     Route: 048
     Dates: start: 20150330, end: 20150804
  2. SOVALDI [Suspect]
     Active Substance: SOFOSBUVIR
     Indication: HEPATITIS C
     Dosage: 400 MG, QD
     Route: 048
     Dates: start: 20150330, end: 20150804

REACTIONS (6)
  - Hepatic cirrhosis [Fatal]
  - Oesophageal varices haemorrhage [Unknown]
  - Pyrexia [Unknown]
  - Multi-organ failure [Fatal]
  - Hepatorenal syndrome [Fatal]
  - General physical health deterioration [None]

NARRATIVE: CASE EVENT DATE: 201507
